FAERS Safety Report 20975205 (Version 1)
Quarter: 2022Q2

REPORT INFORMATION
  Report Type: Spontaneous
  Country: DE (occurrence: DE)
  Receive Date: 20220617
  Receipt Date: 20220617
  Transmission Date: 20220721
  Serious: Yes (Other)
  Sender: FDA-Public Use
  Company Number: DE-DCGMA-21193791

PATIENT
  Age: 37 Year
  Sex: Female

DRUGS (1)
  1. COTRIM [Suspect]
     Active Substance: SULFAMETHOXAZOLE\TRIMETHOPRIM
     Dosage: 2 SEPARATED DOSES
     Route: 048
     Dates: start: 20210917, end: 20210923

REACTIONS (4)
  - Headache [Recovered/Resolved]
  - Leukopenia [Recovered/Resolved]
  - Body temperature increased [Recovered/Resolved]
  - Influenza like illness [Recovered/Resolved]

NARRATIVE: CASE EVENT DATE: 20210924
